FAERS Safety Report 17502117 (Version 4)
Quarter: 2020Q2

REPORT INFORMATION
  Report Type: Spontaneous
  Country: US (occurrence: US)
  Receive Date: 20200305
  Receipt Date: 20200615
  Transmission Date: 20200713
  Serious: No
  Sender: FDA-Public Use
  Company Number: US-PFIZER INC-2020097934

PATIENT
  Age: 68 Year
  Sex: Female

DRUGS (3)
  1. CORTEF [Suspect]
     Active Substance: HYDROCORTISONE
     Dosage: 10 MG, 1X/DAY (AM)
     Route: 048
  2. LACTOSE [Suspect]
     Active Substance: LACTOSE
     Dosage: UNK
  3. HYDROCORTISONE. [Suspect]
     Active Substance: HYDROCORTISONE
     Dosage: 10 MG, ALTERNATE DAY (1 EVERY OTHER DAY)
     Dates: start: 20200303

REACTIONS (3)
  - Diarrhoea [Recovered/Resolved]
  - Allergic reaction to excipient [Unknown]
  - Gastrointestinal disorder [Recovered/Resolved]

NARRATIVE: CASE EVENT DATE: 2020
